FAERS Safety Report 20817842 (Version 1)
Quarter: 2022Q2

REPORT INFORMATION
  Report Type: Report from Study
  Country: GB (occurrence: GB)
  Receive Date: 20220512
  Receipt Date: 20220512
  Transmission Date: 20220721
  Serious: Yes (Death, Hospitalization, Other)
  Sender: FDA-Public Use
  Company Number: GB-CELGENE-GBR-20210904649

PATIENT
  Age: 51 Year
  Sex: Male
  Weight: 68.7 kg

DRUGS (2)
  1. PACLITAXEL [Suspect]
     Active Substance: PACLITAXEL
     Indication: Pancreatic carcinoma
     Dosage: FREQUENCY TEXT: DAYS 1,8,15 OF A 28 DAYS?230MG
     Route: 042
     Dates: start: 20210728, end: 20210909
  2. GEMCITABINE [Suspect]
     Active Substance: GEMCITABINE
     Indication: Pancreatic carcinoma
     Dosage: FREQUENCY TEXT: DAY 1,8 AND 15 OF A28 DAYS?1862MG
     Route: 042
     Dates: start: 20210728, end: 20210909

REACTIONS (1)
  - Pulmonary embolism [Fatal]

NARRATIVE: CASE EVENT DATE: 20210924
